FAERS Safety Report 7945016-3 (Version None)
Quarter: 2011Q4

REPORT INFORMATION
  Report Type: 
  Country: None (occurrence: None)
  Receive Date: 20111122
  Receipt Date: 20111108
  Transmission Date: 20120403
  Serious: Yes (Hospitalization)
  Sender: FDA-Public Use
  Company Number: KR-JNJFOC-20090902796

PATIENT
  Age: 60 Year
  Sex: Male
  Weight: 66 kg

DRUGS (15)
  1. VITAMIN SUPPLEMENTATION (VITAMIN B NOS) [Concomitant]
  2. LEGALON (SILYBUM MARIANUM) [Concomitant]
  3. DIFLUCAN [Concomitant]
  4. FOLIC ACID [Concomitant]
  5. URSODIOL [Concomitant]
  6. ZOLPIDEM TARTRATE [Concomitant]
  7. CALCIUM CARBONATE [Concomitant]
  8. DECITABINE [Suspect]
     Indication: MYELODYSPLASTIC SYNDROME
     Dosage: SEE IMAGE:  INTRAVENOUS
     Route: 042
     Dates: start: 20090610, end: 20090614
  9. DECITABINE [Suspect]
     Indication: MYELODYSPLASTIC SYNDROME
     Dosage: SEE IMAGE:  INTRAVENOUS
     Route: 042
     Dates: start: 20090213, end: 20090217
  10. DECITABINE [Suspect]
     Indication: MYELODYSPLASTIC SYNDROME
     Dosage: SEE IMAGE:  INTRAVENOUS
     Route: 042
     Dates: start: 20090413, end: 20090417
  11. DECITABINE [Suspect]
     Indication: MYELODYSPLASTIC SYNDROME
     Dosage: SEE IMAGE:  INTRAVENOUS
     Route: 042
     Dates: start: 20090714, end: 20090718
  12. DECITABINE [Suspect]
     Indication: MYELODYSPLASTIC SYNDROME
     Dosage: SEE IMAGE:  INTRAVENOUS
     Route: 042
     Dates: start: 20090511, end: 20090515
  13. DECITABINE [Suspect]
     Indication: MYELODYSPLASTIC SYNDROME
     Dosage: SEE IMAGE:  INTRAVENOUS
     Route: 042
     Dates: start: 20090316, end: 20090320
  14. DIAZEPAM [Concomitant]
  15. ZOLPIDEM TARTRATE [Concomitant]

REACTIONS (1)
  - DISSEMINATED TUBERCULOSIS [None]
